FAERS Safety Report 9387991 (Version 1)
Quarter: 2013Q3

REPORT INFORMATION
  Report Type: Spontaneous
  Country: CA (occurrence: CA)
  Receive Date: 20130708
  Receipt Date: 20130708
  Transmission Date: 20140515
  Serious: Yes (Other)
  Sender: FDA-Public Use
  Company Number: CA-BAYER-2013-080076

PATIENT
  Age: 77 Year
  Sex: Female

DRUGS (2)
  1. ALEVE [Suspect]
     Dosage: 220 MG, QD
     Route: 048
  2. PEPTO-BISMOL [Concomitant]

REACTIONS (4)
  - Chest discomfort [Recovered/Resolved]
  - Dyspnoea [Recovered/Resolved]
  - Palpitations [Recovered/Resolved]
  - Pulse abnormal [Recovered/Resolved]
